FAERS Safety Report 7454044-6 (Version None)
Quarter: 2011Q2

REPORT INFORMATION
  Report Type: 
  Country: None (occurrence: None)
  Receive Date: 20110502
  Receipt Date: 20110425
  Transmission Date: 20111010
  Serious: Yes (Hospitalization, Other)
  Sender: FDA-Public Use
  Company Number: IT-GENENTECH-315183

PATIENT

DRUGS (2)
  1. 2-CHLORO-2'-DEOXYADENOSINE [Suspect]
     Indication: WALDENSTROM'S MACROGLOBULINAEMIA
     Dosage: 0.1 MG/KG, UNK
     Route: 058
  2. RITUXIMAB [Suspect]
     Indication: WALDENSTROM'S MACROGLOBULINAEMIA
     Dosage: 375 MG/M2, 1/MONTH
     Route: 042

REACTIONS (7)
  - ACUTE CORONARY SYNDROME [None]
  - ANAEMIA [None]
  - HYPOTENSION [None]
  - ATRIAL FIBRILLATION [None]
  - NEUTROPENIA [None]
  - BRONCHOSPASM [None]
  - INFUSION RELATED REACTION [None]
